FAERS Safety Report 9380202 (Version 1)
Quarter: 2013Q3

REPORT INFORMATION
  Report Type: Report from Study
  Country: IT (occurrence: IT)
  Receive Date: 20130702
  Receipt Date: 20130702
  Transmission Date: 20140515
  Serious: Yes (Death)
  Sender: FDA-Public Use
  Company Number: PHHY2013IT068446

PATIENT
  Age: 63 Year
  Sex: Male

DRUGS (5)
  1. CISPLATIN [Suspect]
     Indication: SMALL CELL LUNG CANCER
     Dosage: 42.4 MG, QD
     Route: 042
     Dates: start: 20130614, end: 20130615
  2. ETOPOSIDE [Suspect]
     Indication: SMALL CELL LUNG CANCER
     Dosage: 169.6 MG, QD
     Route: 042
     Dates: start: 20130614, end: 20130615
  3. ZOLEDRONATE [Suspect]
     Indication: SMALL CELL LUNG CANCER
     Dosage: 4 MG, QD
     Route: 042
     Dates: start: 20130614, end: 20130615
  4. BEVACIZUMAB [Suspect]
     Indication: SMALL CELL LUNG CANCER
     Dosage: 495 MG, QD
     Route: 042
     Dates: start: 20130614, end: 20130615
  5. FENTANYL [Concomitant]
     Dosage: 15 MG, FOR 72 HOURS
     Route: 062
     Dates: start: 20130613, end: 20130616

REACTIONS (1)
  - Respiratory failure [Fatal]
